FAERS Safety Report 13536797 (Version 10)
Quarter: 2021Q1

REPORT INFORMATION
  Report Type: Report from Study
  Country: CA (occurrence: CA)
  Receive Date: 20170511
  Receipt Date: 20210220
  Transmission Date: 20210419
  Serious: Yes (Hospitalization)
  Sender: FDA-Public Use
  Company Number: PHHY2017CA066310

PATIENT
  Age: 53 Year
  Sex: Male

DRUGS (10)
  1. COSENTYX [Suspect]
     Active Substance: SECUKINUMAB
     Dosage: 300 MG, QMO
     Route: 058
     Dates: start: 20170227
  2. COSENTYX [Suspect]
     Active Substance: SECUKINUMAB
     Dosage: 300 MG, QMO
     Route: 058
     Dates: start: 2017
  3. CICLOSPORIN [Suspect]
     Active Substance: CYCLOSPORINE
     Indication: PSORIASIS
     Dosage: UNK
     Route: 065
  4. COSENTYX [Suspect]
     Active Substance: SECUKINUMAB
     Indication: PSORIASIS
     Dosage: 300 MG, QMO (Q 4 WEEKS)
     Route: 058
     Dates: start: 20170130, end: 20170220
  5. COSENTYX [Suspect]
     Active Substance: SECUKINUMAB
     Dosage: 300 MG, QMO
     Route: 058
     Dates: start: 20170427
  6. COSENTYX [Suspect]
     Active Substance: SECUKINUMAB
     Dosage: UNK
     Route: 065
     Dates: start: 20201208
  7. ACITRETIN. [Concomitant]
     Active Substance: ACITRETIN
     Indication: PSORIASIS
     Dosage: UNK
     Route: 065
  8. OTEZLA [Concomitant]
     Active Substance: APREMILAST
     Indication: PSORIASIS
     Dosage: UNK
     Route: 065
     Dates: start: 201605
  9. COSENTYX [Suspect]
     Active Substance: SECUKINUMAB
     Dosage: UNK
     Route: 065
     Dates: start: 20210105
  10. COSENTYX [Suspect]
     Active Substance: SECUKINUMAB
     Dosage: 300 MG, QMO
     Route: 058
     Dates: start: 20180127

REACTIONS (14)
  - COVID-19 [Unknown]
  - Scab [Unknown]
  - Cough [Not Recovered/Not Resolved]
  - Ill-defined disorder [Unknown]
  - Therapeutic product effect decreased [Unknown]
  - COVID-19 pneumonia [Not Recovered/Not Resolved]
  - Abscess [Unknown]
  - Limb discomfort [Not Recovered/Not Resolved]
  - Pruritus [Unknown]
  - Fatigue [Not Recovered/Not Resolved]
  - Psoriasis [Unknown]
  - Scratch [Unknown]
  - Malaise [Unknown]
  - Asthenia [Not Recovered/Not Resolved]

NARRATIVE: CASE EVENT DATE: 20171101
